FAERS Safety Report 8924289 (Version 1)
Quarter: 2012Q4

REPORT INFORMATION
  Report Type: 
  Country: JP (occurrence: JP)
  Receive Date: 20121126
  Receipt Date: 20121126
  Transmission Date: 20130627
  Serious: Yes (Hospitalization, Other)
  Sender: FDA-Public Use
  Company Number: JP-GLAXOSMITHKLINE-B0841634A

PATIENT
  Age: 63 Year
  Sex: Male

DRUGS (3)
  1. CLOBETASOL PROPIONATE [Suspect]
     Indication: PUSTULAR PSORIASIS
     Route: 061
     Dates: start: 1996, end: 2007
  2. CALCIPOTRIOL [Concomitant]
     Indication: PSORIASIS
     Route: 065
  3. CYCLOSPORIN [Concomitant]
     Indication: PSORIASIS
     Route: 065

REACTIONS (12)
  - Osteonecrosis [Recovered/Resolved with Sequelae]
  - Musculoskeletal discomfort [Recovering/Resolving]
  - Skin atrophy [Unknown]
  - Blood cholesterol increased [Recovered/Resolved]
  - Blood triglycerides increased [Recovered/Resolved]
  - C-reactive protein increased [Recovered/Resolved]
  - Blood corticotrophin abnormal [Unknown]
  - Blood cortisol decreased [Unknown]
  - Adrenal suppression [Unknown]
  - Hypokinesia [Unknown]
  - Musculoskeletal pain [Unknown]
  - Dyslipidaemia [Recovered/Resolved]
